FAERS Safety Report 16851134 (Version 18)
Quarter: 2021Q3

REPORT INFORMATION
  Report Type: Spontaneous
  Country: US (occurrence: US)
  Receive Date: 20190925
  Receipt Date: 20210921
  Transmission Date: 20211014
  Serious: Yes (Other)
  Sender: FDA-Public Use
  Company Number: US-PFIZER INC-2019408966

PATIENT
  Age: 56 Year
  Sex: Female
  Weight: 72 kg

DRUGS (2)
  1. XELJANZ XR [Suspect]
     Active Substance: TOFACITINIB CITRATE
     Dosage: 11 MG, 1X/DAY
     Route: 048
     Dates: start: 2020
  2. XELJANZ XR [Suspect]
     Active Substance: TOFACITINIB CITRATE
     Indication: RHEUMATOID ARTHRITIS
     Dosage: 11 MG, 1X/DAY
     Route: 048
     Dates: start: 201910, end: 202004

REACTIONS (14)
  - Fall [Not Recovered/Not Resolved]
  - Therapeutic response unexpected [Unknown]
  - Condition aggravated [Unknown]
  - Muscle rupture [Not Recovered/Not Resolved]
  - Angle closure glaucoma [Unknown]
  - Contusion [Unknown]
  - Peripheral swelling [Unknown]
  - Aphonia [Unknown]
  - Impaired healing [Unknown]
  - Illness [Unknown]
  - Rotator cuff syndrome [Unknown]
  - Musculoskeletal stiffness [Unknown]
  - Confusional state [Unknown]
  - Hair growth abnormal [Unknown]

NARRATIVE: CASE EVENT DATE: 20200224
